FAERS Safety Report 6243146-8 (Version None)
Quarter: 2009Q2

REPORT INFORMATION
  Report Type: 
  Country: None (occurrence: None)
  Receive Date: 20090624
  Receipt Date: 20090519
  Transmission Date: 20091009
  Serious: No
  Sender: FDA-Public Use
  Company Number: US-BAYER-200911564BCC

PATIENT
  Age: 66 Year
  Sex: Female
  Weight: 68 kg

DRUGS (5)
  1. ALEVE (CAPLET) [Suspect]
     Indication: ARTHRITIS
     Dosage: TOTAL DAILY DOSE: 220 MG  UNIT DOSE: 220 MG
     Route: 048
  2. LEVITHROL [Concomitant]
     Indication: DRUG USE FOR UNKNOWN INDICATION
  3. FISH OIL TABLET [Concomitant]
     Indication: DRUG USE FOR UNKNOWN INDICATION
  4. ONE A DAY WOMEN'S VITAMIN [Concomitant]
     Indication: DRUG USE FOR UNKNOWN INDICATION
  5. TYLENOL (CAPLET) [Concomitant]
     Indication: PAIN

REACTIONS (2)
  - ABDOMINAL DISCOMFORT [None]
  - DYSPEPSIA [None]
